FAERS Safety Report 9542070 (Version 1)
Quarter: 2013Q3

REPORT INFORMATION
  Report Type: Spontaneous
  Country: GB (occurrence: None)
  Receive Date: 20130918
  Receipt Date: 20130918
  Transmission Date: 20140515
  Serious: Yes (Hospitalization, Disabling, Other)
  Sender: FDA-Public Use
  Company Number: AUR-APL-2013-07576

PATIENT
  Age: 52 Year
  Sex: Female
  Weight: 69.85 kg

DRUGS (1)
  1. GABAPENTIN [Suspect]
     Indication: NECK PAIN
     Route: 048
     Dates: start: 20111120, end: 20111201

REACTIONS (2)
  - Hypoaesthesia oral [None]
  - Metamorphopsia [None]
